FAERS Safety Report 18093634 (Version 1)
Quarter: 2020Q3

REPORT INFORMATION
  Report Type: Spontaneous
  Country: SE (occurrence: SE)
  Receive Date: 20200730
  Receipt Date: 20200730
  Transmission Date: 20201103
  Serious: Yes (Other)
  Sender: FDA-Public Use
  Company Number: SE-MYLANLABS-2020M1067218

PATIENT
  Age: 66 Year
  Sex: Female

DRUGS (10)
  1. BACLOFEN. [Suspect]
     Active Substance: BACLOFEN
     Indication: PRODUCT USED FOR UNKNOWN INDICATION
     Dosage: 15 MILLIGRAM, QD
  2. KALCIPOS?D [Concomitant]
     Active Substance: CALCIUM CARBONATE\CHOLECALCIFEROL
     Dosage: UNK
  3. OXYCONTIN [Concomitant]
     Active Substance: OXYCODONE HYDROCHLORIDE
     Dosage: 1 UNK, PRN
  4. ALVEDON [Concomitant]
     Active Substance: ACETAMINOPHEN
     Dosage: 1 UNK, PRN
  5. OMEPRAZOL                          /00661201/ [Concomitant]
     Active Substance: OMEPRAZOLE
     Dosage: UNK
  6. VISCOTEARS [Concomitant]
     Active Substance: CARBOMER
     Dosage: 1 UNK, PRN
     Dates: end: 202006
  7. XYLOCAIN                           /00033401/ [Concomitant]
     Active Substance: LIDOCAINE
     Dosage: 1 UNK, PRN
  8. BETOLVEX                           /00056201/ [Concomitant]
     Active Substance: CYANOCOBALAMIN
     Dosage: UNK
  9. ESCITALOPRAM [Concomitant]
     Active Substance: ESCITALOPRAM OXALATE
     Dosage: UNK
  10. KALEORID [Concomitant]
     Active Substance: POTASSIUM CHLORIDE
     Dosage: UNK

REACTIONS (1)
  - Disorientation [Unknown]

NARRATIVE: CASE EVENT DATE: 202006
